FAERS Safety Report 7010776-5 (Version None)
Quarter: 2010Q3

REPORT INFORMATION
  Report Type: 
  Country: None (occurrence: None)
  Receive Date: 20100923
  Receipt Date: 20100910
  Transmission Date: 20110219
  Serious: No
  Sender: FDA-Public Use
  Company Number: US-PFIZER INC-2010115553

PATIENT
  Sex: Male
  Weight: 83.9 kg

DRUGS (1)
  1. XALATAN [Suspect]
     Indication: INTRAOCULAR PRESSURE INCREASED
     Dosage: 1 GTT, IN EACH EYE
     Dates: start: 20071101

REACTIONS (1)
  - INTRAOCULAR PRESSURE INCREASED [None]
